FAERS Safety Report 18423795 (Version 1)
Quarter: 2020Q4

REPORT INFORMATION
  Report Type: Spontaneous
  Country: US (occurrence: US)
  Receive Date: 20201024
  Receipt Date: 20201024
  Transmission Date: 20210114
  Serious: Yes (Hospitalization)
  Sender: FDA-Public Use
  Company Number: NVSC2020US282625

PATIENT
  Sex: Female
  Weight: 35 kg

DRUGS (1)
  1. KISQALI FEMARA CO-PACK [Suspect]
     Active Substance: LETROZOLE\RIBOCICLIB
     Indication: BREAST CANCER
     Dosage: 42/28, QD
     Route: 048
     Dates: start: 20200724

REACTIONS (2)
  - Dizziness [Recovering/Resolving]
  - Pericardial effusion [Recovering/Resolving]
